FAERS Safety Report 21075789 (Version 1)
Quarter: 2022Q3

REPORT INFORMATION
  Report Type: Spontaneous
  Country: US (occurrence: None)
  Receive Date: 20220712
  Receipt Date: 20220712
  Transmission Date: 20221027
  Serious: No
  Sender: FDA-Public Use
  Company Number: None

PATIENT
  Age: 63 Year
  Sex: Male
  Weight: 108 kg

DRUGS (14)
  1. TRULICITY [Suspect]
     Active Substance: DULAGLUTIDE
     Indication: Diabetes mellitus
     Dosage: OTHER FREQUENCY : WEEKLY;?
     Route: 058
     Dates: start: 20220401, end: 20220601
  2. ATORVASTATIN CALCIUM [Concomitant]
     Active Substance: ATORVASTATIN CALCIUM
  3. CARVEDILOL [Concomitant]
     Active Substance: CARVEDILOL
  4. FLUOXETINE HYDROCHLORIDE [Concomitant]
     Active Substance: FLUOXETINE HYDROCHLORIDE
  5. INVOKANA [Concomitant]
     Active Substance: CANAGLIFLOZIN
  6. JANUVIA [Concomitant]
     Active Substance: SITAGLIPTIN PHOSPHATE
  7. LANTUS [Concomitant]
     Active Substance: INSULIN GLARGINE
  8. HUMALOG [Concomitant]
     Active Substance: INSULIN LISPRO
  9. METFORMIN HYDROCHLORIDE [Concomitant]
     Active Substance: METFORMIN HYDROCHLORIDE
  10. TRAMADOL [Concomitant]
     Active Substance: TRAMADOL
  11. TRAZODONE [Concomitant]
     Active Substance: TRAZODONE HYDROCHLORIDE
  12. XARELTO [Concomitant]
     Active Substance: RIVAROXABAN
  13. ACETAMINOPHEN [Concomitant]
     Active Substance: ACETAMINOPHEN
  14. LOW DOSE ASPIRIN [Concomitant]
     Active Substance: ASPIRIN

REACTIONS (2)
  - Dizziness [None]
  - Dizziness [None]

NARRATIVE: CASE EVENT DATE: 20220518
